FAERS Safety Report 12948228 (Version 1)
Quarter: 2016Q4

REPORT INFORMATION
  Report Type: Spontaneous
  Country: US (occurrence: US)
  Receive Date: 20161116
  Receipt Date: 20161116
  Transmission Date: 20170207
  Serious: No
  Sender: FDA-Public Use
  Company Number: US-BAYER-2016-210834

PATIENT
  Age: 46 Year
  Sex: Female

DRUGS (1)
  1. MIRENA [Suspect]
     Active Substance: LEVONORGESTREL
     Indication: GENITAL HAEMORRHAGE
     Dosage: 20 MCG/24HR, CONT
     Route: 015
     Dates: start: 20161031, end: 20161031

REACTIONS (4)
  - Device expulsion [Recovered/Resolved]
  - Complication of device insertion [None]
  - Complication of device insertion [None]
  - Uterine spasm [Recovered/Resolved]

NARRATIVE: CASE EVENT DATE: 20161031
